FAERS Safety Report 9315381 (Version 4)
Quarter: 2013Q3

REPORT INFORMATION
  Report Type: Report from Study
  Country: GR (occurrence: GR)
  Receive Date: 20130529
  Receipt Date: 20130726
  Transmission Date: 20140515
  Serious: Yes (Hospitalization)
  Sender: FDA-Public Use
  Company Number: GR-ABBOTT-13P-066-1094342-00

PATIENT
  Age: 50 Year
  Sex: Male

DRUGS (2)
  1. HUMIRA [Suspect]
     Indication: ANKYLOSING SPONDYLITIS
     Route: 058
     Dates: start: 20130227
  2. UNKNOWN MEDICATION [Concomitant]
     Indication: PSYCHOTIC DISORDER

REACTIONS (2)
  - Psychotic disorder [Recovering/Resolving]
  - White blood cell count increased [Unknown]
